FAERS Safety Report 19041633 (Version 1)
Quarter: 2021Q1

REPORT INFORMATION
  Report Type: Other
  Country: US (occurrence: US)
  Receive Date: 20210322
  Receipt Date: 20210322
  Transmission Date: 20210420
  Serious: Yes (Other)
  Sender: FDA-Public Use
  Company Number: US-ROCHE-2791900

PATIENT

DRUGS (1)
  1. ALTEPLASE. [Suspect]
     Active Substance: ALTEPLASE
     Indication: DIABETIC RETINOPATHY
     Dosage: FIFTY MICROGRAMS/0.1 CC OF TPA WAS INJECTED INTRAVITREALLY USING STANDARD INJECTION TECHNIQUE
     Route: 050

REACTIONS (3)
  - Off label use [Unknown]
  - Intentional product use issue [Unknown]
  - Vitreous haemorrhage [Unknown]
